FAERS Safety Report 4549717-9 (Version None)
Quarter: 2005Q1

REPORT INFORMATION
  Report Type: 
  Country: None (occurrence: None)
  Receive Date: 20050110
  Receipt Date: 20041208
  Transmission Date: 20050727
  Serious: Yes (Hospitalization)
  Sender: FDA-Public Use
  Company Number: 2004BI001069

PATIENT
  Age: 69 Year
  Sex: Male

DRUGS (10)
  1. AMEVIVE [Suspect]
     Indication: PSORIASIS
     Dosage: 15 MG; QW; IM
     Route: 030
     Dates: start: 20041029
  2. COUMADIN [Concomitant]
  3. ASPIRIN [Concomitant]
  4. TENORMIN [Concomitant]
  5. NORVASC [Concomitant]
  6. K-DUR 10 [Concomitant]
  7. DEMADEX [Concomitant]
  8. THEO-DUR [Concomitant]
  9. BEXTRA [Concomitant]
  10. HUMIBID [Concomitant]

REACTIONS (2)
  - OEDEMA PERIPHERAL [None]
  - SEPSIS [None]
